FAERS Safety Report 21449475 (Version 1)
Quarter: 2022Q4

REPORT INFORMATION
  Report Type: Report from Study
  Country: US (occurrence: US)
  Receive Date: 20221013
  Receipt Date: 20221013
  Transmission Date: 20230112
  Serious: Yes (Other)
  Sender: FDA-Public Use
  Company Number: US-ABBVIE-4152939

PATIENT
  Age: 60 Year
  Sex: Male

DRUGS (5)
  1. HUMIRA [Suspect]
     Active Substance: ADALIMUMAB
     Indication: Psoriatic arthropathy
     Route: 058
  2. COVID-19 vaccine [Concomitant]
     Indication: COVID-19 immunisation
     Dosage: 4TH DOSE?1 IN ONCE
     Route: 030
     Dates: start: 20220610, end: 20220610
  3. MODERNA COVID-19 VACCINE [Concomitant]
     Active Substance: ELASOMERAN
     Indication: COVID-19 immunisation
     Dosage: 3RD DOSE?1 IN ONCE
     Route: 030
     Dates: start: 20211007, end: 20211007
  4. MODERNA COVID-19 VACCINE [Concomitant]
     Active Substance: ELASOMERAN
     Indication: COVID-19 immunisation
     Dosage: 1ST DOSE?1 IN ONCE
     Route: 058
     Dates: start: 20210317, end: 20210317
  5. MODERNA COVID-19 VACCINE [Concomitant]
     Active Substance: ELASOMERAN
     Indication: COVID-19 immunisation
     Dosage: 2ND DOSE?1 IN ONCE
     Route: 030
     Dates: start: 20210414, end: 20210414

REACTIONS (1)
  - Surgery [Unknown]

NARRATIVE: CASE EVENT DATE: 20220901
